FAERS Safety Report 7884235-1 (Version None)
Quarter: 2011Q4

REPORT INFORMATION
  Report Type: 
  Country: None (occurrence: None)
  Receive Date: 20111102
  Receipt Date: 20111029
  Transmission Date: 20120403
  Serious: No
  Sender: FDA-Public Use
  Company Number: US-PFIZER INC-2011264804

PATIENT
  Sex: Female

DRUGS (2)
  1. PREMARIN [Suspect]
     Indication: HYSTERECTOMY
     Dosage: UNK, 1X/DAY
     Route: 048
     Dates: start: 20050401
  2. PREMARIN [Suspect]
     Indication: OESTROGEN REPLACEMENT THERAPY

REACTIONS (3)
  - DRUG INEFFECTIVE [None]
  - ANXIETY [None]
  - HOT FLUSH [None]
